FAERS Safety Report 10725350 (Version 7)
Quarter: 2016Q4

REPORT INFORMATION
  Report Type: Report from Study
  Country: DE (occurrence: DE)
  Receive Date: 20150121
  Receipt Date: 20161225
  Transmission Date: 20170206
  Serious: Yes (Hospitalization)
  Sender: FDA-Public Use
  Company Number: DE-ROCHE-1523103

PATIENT
  Sex: Male

DRUGS (13)
  1. OMEPRAZOL [Concomitant]
     Active Substance: OMEPRAZOLE
  2. FOLIC ACID. [Concomitant]
     Active Substance: FOLIC ACID
  3. TOCILIZUMAB [Suspect]
     Active Substance: TOCILIZUMAB
     Route: 058
     Dates: end: 20140901
  4. IBUPROFEN. [Concomitant]
     Active Substance: IBUPROFEN
  5. PREDNISOLON [Concomitant]
     Active Substance: PREDNISOLONE
  6. ADENURIC [Concomitant]
     Active Substance: FEBUXOSTAT
  7. METHOTREXATE SODIUM. [Suspect]
     Active Substance: METHOTREXATE SODIUM
     Indication: RHEUMATOID ARTHRITIS
     Route: 065
  8. TOCILIZUMAB [Suspect]
     Active Substance: TOCILIZUMAB
     Indication: RHEUMATOID ARTHRITIS
     Dosage: 640 MG-720 MG?640 MG ADMINISTERED ON 03/JUN/2013 AND 31/JAN/2014
     Route: 058
     Dates: start: 201206
  9. TOCILIZUMAB [Suspect]
     Active Substance: TOCILIZUMAB
     Route: 058
     Dates: start: 20141126, end: 20160721
  10. METHOTREXATE SODIUM. [Suspect]
     Active Substance: METHOTREXATE SODIUM
     Route: 065
  11. ARCOXIA [Concomitant]
     Active Substance: ETORICOXIB
  12. TAMSULOSIN [Concomitant]
     Active Substance: TAMSULOSIN
  13. PANTOZOL [Concomitant]
     Active Substance: PANTOPRAZOLE SODIUM

REACTIONS (6)
  - Cystitis [Recovered/Resolved]
  - Pneumonia [Unknown]
  - Ophthalmic herpes zoster [Not Recovered/Not Resolved]
  - Facial paralysis [Not Recovered/Not Resolved]
  - Prostatic abscess [Recovered/Resolved]
  - Prostatitis [Recovered/Resolved]

NARRATIVE: CASE EVENT DATE: 20140717
